FAERS Safety Report 4430487-X (Version None)
Quarter: 2004Q3

REPORT INFORMATION
  Report Type: 
  Country: None (occurrence: None)
  Receive Date: 20040721
  Receipt Date: 20040106
  Transmission Date: 20050211
  Serious: Yes (Life-Threatening, Hospitalization, Disabling)
  Sender: FDA-Public Use
  Company Number: WAES0401USA00215

PATIENT
  Age: 46 Year
  Sex: Female

DRUGS (3)
  1. VIOXX [Suspect]
     Indication: PAIN
     Dosage: PO
     Route: 048
     Dates: end: 20020101
  2. MOTRIN [Concomitant]
  3. NORVASC [Concomitant]

REACTIONS (1)
  - GASTRIC HAEMORRHAGE [None]
